FAERS Safety Report 8620277-6 (Version None)
Quarter: 2012Q3

REPORT INFORMATION
  Report Type: 
  Country: None (occurrence: None)
  Receive Date: 20120824
  Receipt Date: 20120818
  Transmission Date: 20120928
  Serious: Yes (Other)
  Sender: FDA-Public Use
  Company Number: TR-US-EMD SERONO, INC.-7122142

PATIENT
  Sex: Female
  Weight: 70 kg

DRUGS (8)
  1. REBIF [Suspect]
     Indication: MULTIPLE SCLEROSIS
     Route: 058
     Dates: start: 20110801, end: 20120223
  2. REBIF [Suspect]
     Dates: start: 20120701
  3. FAMOTIDINE [Suspect]
     Indication: GASTRIC DISORDER
     Route: 048
     Dates: start: 20110801
  4. TEGRETOL [Suspect]
     Indication: MUSCLE SPASMS
     Route: 048
     Dates: start: 20110801
  5. LEVOTHYROXINE SODIUM [Suspect]
     Indication: GOITRE
     Route: 048
     Dates: start: 20080101, end: 20120326
  6. ESCITALOPRAM [Suspect]
     Indication: DEPRESSION
     Route: 048
     Dates: start: 20110801
  7. TROSPIUM CHLORIDE [Suspect]
     Indication: URINARY INCONTINENCE
     Route: 048
     Dates: start: 20110801
  8. ASPIRIN [Suspect]
     Indication: THROMBOSIS
     Route: 048
     Dates: start: 20110801

REACTIONS (3)
  - CHOLELITHIASIS [None]
  - BLOOD TEST ABNORMAL [None]
  - HEPATIC ENZYME INCREASED [None]
